FAERS Safety Report 4715444-8 (Version None)
Quarter: 2005Q3

REPORT INFORMATION
  Report Type: 
  Country: None (occurrence: None)
  Receive Date: 20050715
  Receipt Date: 20050715
  Transmission Date: 20060218
  Serious: Yes (Life-Threatening, Hospitalization)
  Sender: FDA-Public Use
  Company Number: None

PATIENT
  Age: 52 Year
  Sex: Male
  Weight: 75.7507 kg

DRUGS (1)
  1. BACTRIM [Suspect]
     Indication: PROSTATITIS
     Dosage: 800 MG EVERY 12 HRS
     Dates: start: 20050504, end: 20050514

REACTIONS (3)
  - INFECTION [None]
  - PROSTATIC SPECIFIC ANTIGEN INCREASED [None]
  - STEVENS-JOHNSON SYNDROME [None]
